FAERS Safety Report 13897454 (Version 1)
Quarter: 2017Q3

REPORT INFORMATION
  Report Type: Spontaneous
  Country: US (occurrence: US)
  Receive Date: 20170823
  Receipt Date: 20170823
  Transmission Date: 20171127
  Serious: No
  Sender: FDA-Public Use
  Company Number: US-SA-2016SA179399

PATIENT
  Age: 49 Year
  Sex: Male

DRUGS (3)
  1. PRADAXA [Concomitant]
     Active Substance: DABIGATRAN ETEXILATE MESYLATE
  2. ATENOLOL. [Concomitant]
     Active Substance: ATENOLOL
  3. MULTAQ [Suspect]
     Active Substance: DRONEDARONE
     Indication: CARDIAC ABLATION
     Route: 065
     Dates: start: 20160912

REACTIONS (1)
  - Vision blurred [Not Recovered/Not Resolved]

NARRATIVE: CASE EVENT DATE: 20160922
